FAERS Safety Report 5266418-2 (Version None)
Quarter: 2007Q1

REPORT INFORMATION
  Report Type: 
  Country: None (occurrence: None)
  Receive Date: 20070315
  Receipt Date: 20070220
  Transmission Date: 20070707
  Serious: No
  Sender: FDA-Public Use
  Company Number: US-GLAXOSMITHKLINE-A0639507A

PATIENT
  Age: 2 Year
  Sex: Male

DRUGS (3)
  1. FLOVENT [Suspect]
     Indication: ASTHMA
     Dosage: 3PUFF TWICE PER DAY
     Route: 055
     Dates: end: 20070101
  2. SINGULAIR [Concomitant]
  3. CEFZIL [Concomitant]

REACTIONS (2)
  - DYSPHONIA [None]
  - LARYNGITIS [None]
